FAERS Safety Report 18915085 (Version 2)
Quarter: 2024Q1

REPORT INFORMATION
  Report Type: Report from Study
  Country: JP (occurrence: JP)
  Receive Date: 20210218
  Receipt Date: 20240106
  Transmission Date: 20240410
  Serious: Yes (Other)
  Sender: FDA-Public Use
  Company Number: JP-CELLTRION INC.-2020JP025026

PATIENT

DRUGS (10)
  1. INFLIXIMAB-DYYB [Suspect]
     Active Substance: INFLIXIMAB-DYYB
     Indication: Crohn^s disease
     Dosage: 360 MG (WEIGHT: 71.6 KG)
     Route: 041
     Dates: start: 20181111, end: 20181111
  2. INFLIXIMAB-DYYB [Suspect]
     Active Substance: INFLIXIMAB-DYYB
     Dosage: 360 MG (WEIGHT: 72.4 KG)
     Route: 041
     Dates: start: 20190106, end: 20190106
  3. INFLIXIMAB-DYYB [Suspect]
     Active Substance: INFLIXIMAB-DYYB
     Dosage: 355 MG (WEIGHT: 70.5 KG)
     Route: 041
     Dates: start: 20190303, end: 20190303
  4. INFLIXIMAB-DYYB [Suspect]
     Active Substance: INFLIXIMAB-DYYB
     Dosage: 370 MG (WEIGHT: 74 KG)
     Route: 041
     Dates: start: 20190505, end: 20190505
  5. INFLIXIMAB-DYYB [Suspect]
     Active Substance: INFLIXIMAB-DYYB
     Dosage: 360 MG (WEIGHT: 72 KG)
     Route: 041
     Dates: start: 20191012, end: 20191012
  6. INFLIXIMAB-DYYB [Suspect]
     Active Substance: INFLIXIMAB-DYYB
     Dosage: 365 MG (WEIGHT: 73 KG)
     Route: 041
     Dates: start: 20201110, end: 20201110
  7. INFLIXIMAB-DYYB [Suspect]
     Active Substance: INFLIXIMAB-DYYB
     Dosage: 370 MG (WEIGHT: 73.9 KG)
     Route: 041
     Dates: start: 20211009, end: 20211009
  8. INFLIXIMAB-DYYB [Suspect]
     Active Substance: INFLIXIMAB-DYYB
     Dosage: 365 MG (WEIGHT: 73.4 KG)
     Route: 041
     Dates: start: 20221107, end: 20221107
  9. INFLIXIMAB-DYYB [Suspect]
     Active Substance: INFLIXIMAB-DYYB
     Dosage: 365 MG (WEIGHT: 73 KG)
     Route: 041
     Dates: start: 20231127, end: 20231127
  10. MESALAMINE [Concomitant]
     Active Substance: MESALAMINE
     Dosage: 3000 MILLIGRAM, DAILY
     Route: 048
     Dates: start: 2018

REACTIONS (10)
  - Arteriosclerosis [Not Recovered/Not Resolved]
  - Enteritis infectious [Recovered/Resolved]
  - Hyperaemia [Recovered/Resolved]
  - Rhinitis allergic [Not Recovered/Not Resolved]
  - Chronic gastritis [Not Recovered/Not Resolved]
  - Dermatitis psoriasiform [Recovered/Resolved]
  - Rash [Not Recovered/Not Resolved]
  - Rhinitis [Recovered/Resolved]
  - Overdose [Unknown]
  - Underdose [Unknown]

NARRATIVE: CASE EVENT DATE: 20181208
